FAERS Safety Report 12388444 (Version 1)
Quarter: 2016Q2

REPORT INFORMATION
  Report Type: Report from Study
  Country: AR (occurrence: AR)
  Receive Date: 20160520
  Receipt Date: 20160520
  Transmission Date: 20160815
  Serious: Yes (Other)
  Sender: FDA-Public Use
  Company Number: AR-ROCHE-1753168

PATIENT
  Age: 63 Year
  Sex: Female

DRUGS (1)
  1. RANIBIZUMAB [Suspect]
     Active Substance: RANIBIZUMAB
     Indication: AGE-RELATED MACULAR DEGENERATION
     Dosage: UNK, QMO IN LEFT EYE
     Route: 065
     Dates: start: 20110401, end: 20110501

REACTIONS (8)
  - Drug intolerance [Unknown]
  - Blindness unilateral [Not Recovered/Not Resolved]
  - Inflammation [Not Recovered/Not Resolved]
  - Age-related macular degeneration [Unknown]
  - Disease progression [Unknown]
  - Eye pain [Not Recovered/Not Resolved]
  - Irritability [Unknown]
  - Headache [Not Recovered/Not Resolved]

NARRATIVE: CASE EVENT DATE: 20110401
